FAERS Safety Report 7190515-8 (Version None)
Quarter: 2010Q4

REPORT INFORMATION
  Report Type: 
  Country: None (occurrence: None)
  Receive Date: 20101223
  Receipt Date: 20101216
  Transmission Date: 20110411
  Serious: Yes (Hospitalization)
  Sender: FDA-Public Use
  Company Number: DE-ELI_LILLY_AND_COMPANY-DE201010005188

PATIENT
  Sex: Female
  Weight: 66.5 kg

DRUGS (2)
  1. GEMCITABINE HCL [Suspect]
     Indication: BREAST CANCER
     Dosage: 1800 MG, UNKNOWN
     Route: 042
     Dates: start: 20101015
  2. DOCETAXEL [Suspect]
     Indication: BREAST CANCER
     Dosage: 134 MG, UNKNOWN
     Route: 042
     Dates: start: 20101015

REACTIONS (6)
  - GAMMA-GLUTAMYLTRANSFERASE ABNORMAL [None]
  - KERATOCONJUNCTIVITIS SICCA [None]
  - LEUKOPENIA [None]
  - PYREXIA [None]
  - RHINITIS [None]
  - TRICUSPID VALVE INCOMPETENCE [None]
